FAERS Safety Report 4483920-1 (Version None)
Quarter: 2004Q4

REPORT INFORMATION
  Report Type: 
  Country: None (occurrence: None)
  Receive Date: 20041025
  Receipt Date: 20040916
  Transmission Date: 20050328
  Serious: Yes (Death, Other)
  Sender: FDA-Public Use
  Company Number: PHBS2004CA12294

PATIENT
  Age: 37 Year
  Sex: Male

DRUGS (16)
  1. NEORAL [Suspect]
     Indication: BONE MARROW TRANSPLANT
     Route: 065
  2. CYCLOPHOSPHAMIDE [Concomitant]
     Dosage: 60 MG/M2/D
  3. METHOTREXATE [Concomitant]
  4. CIPROFLOXACIN [Concomitant]
  5. TAZOCIN [Concomitant]
     Route: 042
  6. TOBRAMYCIN [Concomitant]
     Dosage: 5 MG/KG/DAY
     Route: 042
  7. AMBISOME [Suspect]
     Indication: CAVERNOUS SINUS THROMBOSIS
     Dosage: 5 MG/KG/DAY
     Route: 042
  8. AMBISOME [Suspect]
     Dosage: 3 MG/KG/DAY THREE TIMES A WEEK
     Route: 042
  9. AMBISOME [Suspect]
     Dosage: 5 MG/KG/DAY
     Route: 042
  10. HEPARIN [Suspect]
     Indication: CAVERNOUS SINUS THROMBOSIS
  11. SOLU-MEDROL [Concomitant]
     Indication: GRAFT VERSUS HOST DISEASE
  12. OCTREOTIDE ACETATE [Concomitant]
     Indication: GRAFT VERSUS HOST DISEASE
     Route: 058
  13. ACYCLOVIR [Concomitant]
  14. STEROIDS NOS [Concomitant]
  15. ANTIBIOTICS [Concomitant]
  16. HEPARIN [Concomitant]

REACTIONS (21)
  - BRAIN STEM HAEMORRHAGE [None]
  - CAVERNOUS SINUS THROMBOSIS [None]
  - CEREBRAL HAEMORRHAGE [None]
  - CONFUSIONAL STATE [None]
  - CONJUNCTIVAL OEDEMA [None]
  - CSF PROTEIN INCREASED [None]
  - DIPLOPIA [None]
  - EXOPHTHALMOS [None]
  - EYE MOVEMENT DISORDER [None]
  - EYE PAIN [None]
  - FEBRILE NEUTROPENIA [None]
  - FUNGAL INFECTION [None]
  - GENERAL PHYSICAL HEALTH DETERIORATION [None]
  - GRAFT VERSUS HOST DISEASE [None]
  - HAEMORRHAGE [None]
  - HEADACHE [None]
  - OPHTHALMOPLEGIA [None]
  - RENAL IMPAIRMENT [None]
  - RESTLESSNESS [None]
  - SINUSITIS [None]
  - SUBARACHNOID HAEMORRHAGE [None]
